FAERS Safety Report 24323713 (Version 2)
Quarter: 2024Q3

REPORT INFORMATION
  Report Type: Spontaneous
  Country: US (occurrence: US)
  Receive Date: 20240916
  Receipt Date: 20240917
  Transmission Date: 20241017
  Serious: No
  Sender: BAYER
  Company Number: US-BAYER-2024A130434

PATIENT
  Age: 42 Year
  Sex: Female

DRUGS (1)
  1. CLIMARA PRO [Suspect]
     Active Substance: ESTRADIOL\LEVONORGESTREL
     Indication: Menopause
     Dosage: .045/.015
     Route: 062
     Dates: start: 20240826

REACTIONS (3)
  - Frustration tolerance decreased [Not Recovered/Not Resolved]
  - Anxiety [None]
  - Device adhesion issue [None]

NARRATIVE: CASE EVENT DATE: 20240826
